FAERS Safety Report 12756869 (Version 1)
Quarter: 2016Q3

REPORT INFORMATION
  Report Type: Spontaneous
  Country: US (occurrence: US)
  Receive Date: 20160917
  Receipt Date: 20160917
  Transmission Date: 20161109
  Serious: No
  Sender: FDA-Public Use
  Company Number: US-BIOGEN-2016BI00289465

PATIENT
  Sex: Female

DRUGS (1)
  1. TYSABRI [Suspect]
     Active Substance: NATALIZUMAB
     Indication: MULTIPLE SCLEROSIS
     Route: 065
     Dates: start: 20100320, end: 20150502

REACTIONS (4)
  - Muscular weakness [Not Recovered/Not Resolved]
  - Headache [Not Recovered/Not Resolved]
  - Burning sensation [Not Recovered/Not Resolved]
  - Muscle spasms [Not Recovered/Not Resolved]
